FAERS Safety Report 4530481-4 (Version None)
Quarter: 2004Q4

REPORT INFORMATION
  Report Type: 
  Country: None (occurrence: None)
  Receive Date: 20041216
  Receipt Date: 20041203
  Transmission Date: 20050328
  Serious: Yes (Hospitalization)
  Sender: FDA-Public Use
  Company Number: 25759

PATIENT
  Age: 59 Year
  Sex: Female

DRUGS (3)
  1. TAMBOCOR [Suspect]
     Indication: ATRIAL FIBRILLATION
     Dosage: ORAL
     Route: 048
     Dates: start: 20040601, end: 20040808
  2. TENORMIN [Suspect]
     Indication: ATRIAL FIBRILLATION
     Dosage: ORAL
     Route: 048
     Dates: start: 20040601, end: 20040808
  3. WARAN (WARFARIN) [Concomitant]

REACTIONS (9)
  - ATRIAL FIBRILLATION [None]
  - BALANCE DISORDER [None]
  - BRADYCARDIA [None]
  - CARDIAC ARREST [None]
  - DIZZINESS [None]
  - ELECTROCARDIOGRAM PQ INTERVAL PROLONGED [None]
  - FEELING ABNORMAL [None]
  - HEAD DISCOMFORT [None]
  - SYNCOPE [None]
